FAERS Safety Report 7831700-9 (Version None)
Quarter: 2011Q4

REPORT INFORMATION
  Report Type: 
  Country: None (occurrence: None)
  Receive Date: 20111021
  Receipt Date: 20111014
  Transmission Date: 20120403
  Serious: Yes (Other)
  Sender: FDA-Public Use
  Company Number: DE-TEVA-302032GER

PATIENT
  Sex: Female

DRUGS (1)
  1. AMPICILLIN SODIUM [Suspect]

REACTIONS (1)
  - PARESIS [None]
